FAERS Safety Report 24185712 (Version 1)
Quarter: 2024Q3

REPORT INFORMATION
  Report Type: Report from Study
  Country: NL (occurrence: NL)
  Receive Date: 20240807
  Receipt Date: 20240807
  Transmission Date: 20241017
  Serious: Yes (Other)
  Sender: VERITY PHARMACEUTICALS
  Company Number: NL-VER-202400050

PATIENT
  Age: 70 Year
  Sex: Male

DRUGS (4)
  1. TRIPTORELIN PAMOATE [Suspect]
     Active Substance: TRIPTORELIN PAMOATE
     Indication: Prostate cancer
     Dosage: 22.5 MILLIGRAM(S), 1 IN 6 MONTH, SUSPENSION FOR INJECTION
     Route: 030
     Dates: start: 20240717
  2. TRIPTORELIN PAMOATE [Suspect]
     Active Substance: TRIPTORELIN PAMOATE
     Indication: Prostate cancer
     Dosage: 22.5 MILLIGRAM(S), 1 IN 6 MONTH, SUSPENSION FOR INJECTION
     Route: 030
     Dates: start: 20190718
  3. TRIPTORELIN PAMOATE [Suspect]
     Active Substance: TRIPTORELIN PAMOATE
     Indication: Prostate cancer
     Dosage: 22.5 MILLIGRAM(S), 1 IN 6 MONTH, SUSPENSION FOR INJECTION
     Route: 030
     Dates: start: 20230724
  4. TRIPTORELIN PAMOATE [Suspect]
     Active Substance: TRIPTORELIN PAMOATE
     Indication: Prostate cancer
     Dosage: 22.5 MILLIGRAM(S), 1 IN 6 MONTH, SUSPENSION FOR INJECTION
     Route: 030
     Dates: start: 20240130

REACTIONS (2)
  - Metastasis [Unknown]
  - Terminal state [Unknown]

NARRATIVE: CASE EVENT DATE: 20240717
